FAERS Safety Report 14699381 (Version 5)
Quarter: 2024Q2

REPORT INFORMATION
  Report Type: Spontaneous
  Country: DE (occurrence: DE)
  Receive Date: 20180330
  Receipt Date: 20240513
  Transmission Date: 20240716
  Serious: Yes (Life-Threatening, Hospitalization, Other)
  Sender: FDA-Public Use
  Company Number: DE-ARISTO PHARMA-VALP201802051

PATIENT
  Age: 72 Year
  Sex: Male

DRUGS (29)
  1. VALPROIC ACID [Interacting]
     Active Substance: VALPROIC ACID
     Indication: Myoclonic epilepsy
     Dosage: 900 MG, ON DAY 6
     Route: 048
  2. VALPROIC ACID [Interacting]
     Active Substance: VALPROIC ACID
     Indication: Epilepsy
     Dosage: 1500 MG, ON DAY 7
     Route: 048
  3. VALPROIC ACID [Interacting]
     Active Substance: VALPROIC ACID
     Dosage: DOSE GRADUALLY INCREASED TO AN UNKNOWN LEVEL ON DAY 5; LATER INCREASED TO 1500MG
     Route: 048
  4. VALPROIC ACID [Interacting]
     Active Substance: VALPROIC ACID
     Indication: Myoclonic epilepsy
     Dosage: UNK
     Route: 042
  5. VALPROIC ACID [Interacting]
     Active Substance: VALPROIC ACID
     Indication: Epilepsy
     Dosage: 1500 MG, ON DAY 2
     Route: 042
  6. VALPROIC ACID [Interacting]
     Active Substance: VALPROIC ACID
     Dosage: 1000 MG, ON DAY 1
     Route: 042
  7. VALPROIC ACID [Interacting]
     Active Substance: VALPROIC ACID
     Dosage: 450 MILLIGRAM, BID
     Route: 065
  8. METAMIZOLE [Interacting]
     Active Substance: METAMIZOLE
     Indication: Procedural pain
     Dosage: UNK
     Route: 048
  9. METAMIZOLE [Interacting]
     Active Substance: METAMIZOLE
     Dosage: 3000 MILLIGRAM, ON DAY 3 TO 10
     Route: 048
  10. METAMIZOLE [Interacting]
     Active Substance: METAMIZOLE
     Indication: Procedural pain
     Dosage: UNK
     Route: 042
  11. METAMIZOLE [Interacting]
     Active Substance: METAMIZOLE
     Dosage: 1000 MILLIGRAM, QD, ON DAY 1
     Route: 042
  12. METAMIZOLE [Interacting]
     Active Substance: METAMIZOLE
     Dosage: 3000 MILLIGRAM, QD,3000 MG, UNK, ON DAY 2
     Route: 042
  13. DOBUTAMINE [Concomitant]
     Active Substance: DOBUTAMINE HYDROCHLORIDE
     Indication: Product used for unknown indication
     Dosage: SPORADICALLY ADMINISTERED AS NEEDED
     Route: 065
  14. HYDROCHLOROTHIAZIDE [Concomitant]
     Active Substance: HYDROCHLOROTHIAZIDE
     Indication: Product used for unknown indication
     Dosage: 12.5 MG, QD
     Route: 065
  15. ATORVASTATIN [Concomitant]
     Active Substance: ATORVASTATIN
     Indication: Coronary artery disease
     Dosage: 40 MG, QD
     Route: 065
  16. ACETYLCYSTEINE [Concomitant]
     Active Substance: ACETYLCYSTEINE
     Indication: Product used for unknown indication
     Dosage: SPORADICALLY ADMINISTERED AS NEEDED
     Route: 065
  17. POTASSIUM CHLORIDE [Concomitant]
     Active Substance: POTASSIUM CHLORIDE
     Indication: Product used for unknown indication
     Dosage: SPORADICALLY ADMINISTERED AS NEEDED
     Route: 065
  18. AMIODARONE [Concomitant]
     Active Substance: AMIODARONE
     Indication: Product used for unknown indication
     Dosage: SPORADICALLY ADMINISTERED AS NEEDED
     Route: 065
  19. QUETIAPINE [Concomitant]
     Active Substance: QUETIAPINE
     Indication: Product used for unknown indication
     Dosage: 25 MG, QD
     Route: 065
  20. SUCRALFATE [Concomitant]
     Active Substance: SUCRALFATE
     Indication: Product used for unknown indication
     Dosage: SPORADICALLY ADMINISTERED AS NEEDED
     Route: 065
  21. CALCIUM GLUCONATE [Concomitant]
     Active Substance: CALCIUM GLUCONATE
     Indication: Product used for unknown indication
     Dosage: SPORADICALLY ADMINISTERED AS NEEDED
     Route: 065
  22. ALLOPURINOL [Concomitant]
     Active Substance: ALLOPURINOL
     Indication: Product used for unknown indication
     Dosage: 300 MG, QD
     Route: 065
  23. ASPIRIN [Concomitant]
     Active Substance: ASPIRIN
     Indication: Product used for unknown indication
     Dosage: 100 MG, QD
     Route: 065
  24. PIRITRAMIDE [Concomitant]
     Active Substance: PIRITRAMIDE
     Indication: Procedural pain
     Dosage: 15 MILLIGRAM PER MILLILITRE, PRN
     Route: 042
  25. METOPROLOL [Concomitant]
     Active Substance: METOPROLOL
     Indication: Product used for unknown indication
     Dosage: 95 MG, QD
     Route: 065
  26. INSULIN NOS [Concomitant]
     Active Substance: INSULIN NOS
     Indication: Product used for unknown indication
     Dosage: SPORADICALLY ADMINISTERED AS NEEDED
     Route: 065
  27. METILDIGOXIN [Concomitant]
     Active Substance: METILDIGOXIN
     Indication: Product used for unknown indication
     Dosage: 0.1 MG, QD
     Route: 065
  28. EPINEPHRINE [Concomitant]
     Active Substance: EPINEPHRINE
     Indication: Product used for unknown indication
     Dosage: SPORADICALLY ADMINISTERED AS NEEDED
     Route: 065
  29. MAGNESIUM ASPARTATE [Concomitant]
     Active Substance: MAGNESIUM ASPARTATE
     Indication: Product used for unknown indication
     Dosage: SPORADICALLY ADMINISTERED AS NEEDED
     Route: 065

REACTIONS (4)
  - Acute myocardial infarction [Unknown]
  - Myoclonic epilepsy [Unknown]
  - Drug interaction [Recovered/Resolved]
  - Drug level below therapeutic [Recovered/Resolved]
